FAERS Safety Report 8581651 (Version 7)
Quarter: 2013Q3

REPORT INFORMATION
  Report Type: Report from Study
  Country: CA (occurrence: CA)
  Receive Date: 20120525
  Receipt Date: 20130813
  Transmission Date: 20140515
  Serious: Yes (Hospitalization, Other)
  Sender: FDA-Public Use
  Company Number: CA-ABBOTT-12P-028-0938983-00

PATIENT
  Age: 33 Year
  Sex: Female
  Weight: 48.12 kg

DRUGS (10)
  1. HUMIRA [Suspect]
     Indication: CROHN^S DISEASE
     Dosage: 160 MG ON 25-APR-2012 AND 80 MG ON 13-MAY-2012
     Route: 058
     Dates: start: 20120425, end: 20120425
  2. HUMIRA [Suspect]
     Route: 058
     Dates: start: 20120313, end: 20120313
  3. HUMIRA [Suspect]
     Route: 058
     Dates: start: 20120530, end: 201210
  4. PREDNISONE [Suspect]
     Indication: CROHN^S DISEASE
     Route: 048
     Dates: start: 20120329, end: 20120517
  5. ACYCLOVIR [Suspect]
     Indication: PRODUCT USED FOR UNKNOWN INDICATION
  6. VITAMIN D [Concomitant]
     Indication: VITAMIN SUPPLEMENTATION
     Route: 048
     Dates: start: 20120329
  7. CALCIUM [Concomitant]
     Indication: MINERAL SUPPLEMENTATION
     Route: 048
     Dates: start: 20120329
  8. LYRICA [Concomitant]
     Indication: EYELID PAIN
     Route: 048
     Dates: start: 20120519, end: 20120519
  9. NICOTINE [Concomitant]
     Indication: SMOKING CESSATION THERAPY
     Dates: start: 20120519
  10. SALOFALK [Concomitant]
     Indication: PRODUCT USED FOR UNKNOWN INDICATION

REACTIONS (13)
  - Eyelid oedema [Recovered/Resolved]
  - Ophthalmic herpes zoster [Recovered/Resolved]
  - Vomiting [Unknown]
  - Nausea [Unknown]
  - Herpes simplex [Recovered/Resolved]
  - Pain [Recovered/Resolved]
  - Skin burning sensation [Recovered/Resolved]
  - Pruritus [Recovered/Resolved]
  - Herpes zoster [Recovered/Resolved]
  - Swelling face [Unknown]
  - Throat tightness [Unknown]
  - Dyspnoea [Unknown]
  - Ophthalmic herpes simplex [Unknown]
